FAERS Safety Report 5638191-7 (Version None)
Quarter: 2008Q1

REPORT INFORMATION
  Report Type: 
  Country: None (occurrence: None)
  Receive Date: 20080226
  Receipt Date: 20080222
  Transmission Date: 20080703
  Serious: Yes (Hospitalization)
  Sender: FDA-Public Use
  Company Number: US-BRISTOL-MYERS SQUIBB COMPANY-14088082

PATIENT
  Age: 78 Year
  Sex: Male

DRUGS (19)
  1. HYDREA [Suspect]
  2. CYTARABINE [Suspect]
     Indication: MYELOID LEUKAEMIA
     Route: 058
     Dates: start: 20060802, end: 20070105
  3. DECITABINE [Suspect]
     Indication: MYELOID LEUKAEMIA
     Route: 058
     Dates: start: 20060802, end: 20070105
  4. VITAMIN B-12 [Concomitant]
     Indication: ANAEMIA
     Route: 048
     Dates: start: 20060718
  5. PROSCAR [Concomitant]
     Indication: BENIGN PROSTATIC HYPERPLASIA
     Route: 048
     Dates: start: 20020101
  6. ATENOLOL [Concomitant]
     Indication: HYPERTENSION
     Route: 048
     Dates: start: 20061016
  7. MICRO-K [Concomitant]
     Indication: HYPOKALAEMIA
     Route: 048
     Dates: start: 20060701
  8. CENTRUM SILVER [Concomitant]
     Indication: ROUTINE HEALTH MAINTENANCE
     Route: 048
  9. PRED FORTE [Concomitant]
     Route: 047
  10. ACULAR [Concomitant]
     Route: 047
  11. CYMBALTA [Concomitant]
     Route: 065
  12. DECADRON [Concomitant]
     Dosage: WAS TAPPERED AND STOPPED
  13. SENOKOT [Concomitant]
     Route: 065
  14. COLACE [Concomitant]
     Route: 065
  15. PERIDEX [Concomitant]
  16. BUMEX [Concomitant]
     Route: 065
  17. MS CONTIN [Concomitant]
     Route: 065
  18. DILAUDID [Concomitant]
     Indication: PAIN
     Route: 065
  19. PROTONIX [Concomitant]
     Route: 048

REACTIONS (3)
  - BACK PAIN [None]
  - BACTERAEMIA [None]
  - PAIN IN EXTREMITY [None]
